FAERS Safety Report 13526226 (Version 1)
Quarter: 2017Q2

REPORT INFORMATION
  Report Type: Spontaneous
  Country: US (occurrence: US)
  Receive Date: 20170508
  Receipt Date: 20170508
  Transmission Date: 20170830
  Serious: No
  Sender: FDA-Public Use
  Company Number: None

PATIENT
  Age: 22 Year
  Sex: Male
  Weight: 103 kg

DRUGS (1)
  1. PROAIR HFA [Suspect]
     Active Substance: ALBUTEROL SULFATE
     Indication: ASTHMA
     Dosage: ?          OTHER FREQUENCY:EVERY 4 HOURS;?
     Route: 055
     Dates: start: 20170505, end: 20170507

REACTIONS (2)
  - Hypoaesthesia [None]
  - Pyrexia [None]

NARRATIVE: CASE EVENT DATE: 20170505
